FAERS Safety Report 7436676-4 (Version None)
Quarter: 2011Q2

REPORT INFORMATION
  Report Type: 
  Country: None (occurrence: None)
  Receive Date: 20110426
  Receipt Date: 20110418
  Transmission Date: 20111010
  Serious: Yes (Other)
  Sender: FDA-Public Use
  Company Number: US-ELI_LILLY_AND_COMPANY-US201101002692

PATIENT
  Sex: Female

DRUGS (6)
  1. NORVASC [Concomitant]
     Indication: HYPERTENSION
     Dosage: 5 MG, QD
     Dates: start: 20090812
  2. BYETTA [Suspect]
     Dosage: 10 U, BID
     Route: 058
     Dates: start: 20090130
  3. PRAVASTATIN [Concomitant]
     Indication: HYPERLIPIDAEMIA
     Dosage: 40 MG, QD
     Dates: start: 20081205
  4. LISINOPRIL [Concomitant]
     Indication: HYPERTENSION
     Dosage: 20 MG, QD
     Dates: start: 20081205
  5. METFORMIN [Concomitant]
     Indication: TYPE 2 DIABETES MELLITUS
     Dosage: UNK, UNKNOWN
     Route: 065
     Dates: start: 20081205
  6. BYETTA [Suspect]
     Indication: TYPE 2 DIABETES MELLITUS
     Dosage: 5 U, BID
     Route: 058
     Dates: start: 20081205, end: 20090130

REACTIONS (5)
  - INCORRECT DOSE ADMINISTERED [None]
  - DIZZINESS [None]
  - GASTROENTERITIS VIRAL [None]
  - NAUSEA [None]
  - LOSS OF CONSCIOUSNESS [None]
